FAERS Safety Report 20534377 (Version 1)
Quarter: 2022Q1

REPORT INFORMATION
  Report Type: Other
  Country: US (occurrence: None)
  Receive Date: 20220302
  Receipt Date: 20220302
  Transmission Date: 20220423
  Serious: No
  Sender: FDA-Public Use
  Company Number: US-ROCHE-3034135

PATIENT
  Age: 42 Year
  Sex: Female

DRUGS (1)
  1. OCREVUS [Suspect]
     Active Substance: OCRELIZUMAB
     Indication: Relapsing-remitting multiple sclerosis
     Dosage: ON DAY 1 AND DAY 15 THEN 600 MG EVERY 6 MONTHS; ?DATE OF TREATMENT: 26/JUN/2020, 10/JUL/2020, 11/JAN
     Route: 065
     Dates: start: 20200626

REACTIONS (1)
  - COVID-19 [Recovered/Resolved]

NARRATIVE: CASE EVENT DATE: 20210701
